FAERS Safety Report 4686670-1 (Version None)
Quarter: 2005Q2

REPORT INFORMATION
  Report Type: 
  Country: None (occurrence: None)
  Receive Date: 20050606
  Receipt Date: 20050520
  Transmission Date: 20051028
  Serious: Yes (Life-Threatening, Hospitalization, Other)
  Sender: FDA-Public Use
  Company Number: GBS050517462

PATIENT
  Age: 70 Year
  Sex: Female

DRUGS (11)
  1. CYMBALTA [Suspect]
     Indication: DEPRESSION
     Dosage: 30 MG/1 DAY
     Dates: start: 20050318
  2. EZETIMIBE [Concomitant]
  3. ARTHROTEC [Concomitant]
  4. ASPIRIN [Concomitant]
  5. NICORANDIL [Concomitant]
  6. PROPRANOLOL [Concomitant]
  7. BUSPIRONE HCL [Concomitant]
  8. TRAMADOL [Concomitant]
  9. LYRINEL (OXYBUTYNIN HYDROCHLORIDE) [Concomitant]
  10. LEVOTHYROXINE [Concomitant]
  11. PROCHLORPERAZINE MALEATE [Concomitant]

REACTIONS (5)
  - ANGINA PECTORIS [None]
  - BLOOD PRESSURE SYSTOLIC INCREASED [None]
  - HYPERHIDROSIS [None]
  - PALPITATIONS [None]
  - SUPRAVENTRICULAR TACHYCARDIA [None]
